FAERS Safety Report 15417759 (Version 3)
Quarter: 2018Q4

REPORT INFORMATION
  Report Type: Spontaneous
  Country: US (occurrence: US)
  Receive Date: 20180924
  Receipt Date: 20181107
  Transmission Date: 20190204
  Serious: Yes (Death)
  Sender: FDA-Public Use
  Company Number: US-CELGENEUS-USA-20180907714

PATIENT
  Age: 8 Year
  Sex: Female
  Weight: 16.3 kg

DRUGS (15)
  1. POLYETHYLENE GLYCOL [Concomitant]
     Active Substance: POLYETHYLENE GLYCOLS
     Indication: PRODUCT USED FOR UNKNOWN INDICATION
     Dosage: 17G/DOS
     Route: 065
  2. EPINEPHRINE. [Concomitant]
     Active Substance: EPINEPHRINE
     Indication: CARDIAC ARREST
     Dosage: 2 DOSES
     Route: 041
     Dates: start: 20180914, end: 20180914
  3. TRANSDERM SCOP [Concomitant]
     Active Substance: SCOPOLAMINE
     Indication: PRODUCT USED FOR UNKNOWN INDICATION
     Dosage: 1MG/3
     Route: 065
  4. LORAZEPAM. [Concomitant]
     Active Substance: LORAZEPAM
     Indication: PRODUCT USED FOR UNKNOWN INDICATION
     Dosage: 2 MILLIGRAM/MILLILITERS
     Route: 065
  5. SODIUM CHLORIDE. [Concomitant]
     Active Substance: SODIUM CHLORIDE
     Indication: PRODUCT USED FOR UNKNOWN INDICATION
     Dosage: 3 PERCENT
     Route: 065
  6. TRIAMCINOLONE ACETONID [Concomitant]
     Indication: PRODUCT USED FOR UNKNOWN INDICATION
     Dosage: 5 PERCENT
     Route: 065
  7. CHOLECALCIFEROL [Concomitant]
     Active Substance: CHOLECALCIFEROL
     Indication: PRODUCT USED FOR UNKNOWN INDICATION
     Dosage: 20000 IU (INTERNATIONAL UNIT)
     Route: 048
     Dates: end: 20180914
  8. REVLIMID [Suspect]
     Active Substance: LENALIDOMIDE
     Indication: OFF LABEL USE
  9. ZOLINZA [Concomitant]
     Active Substance: VORINOSTAT
     Indication: PRODUCT USED FOR UNKNOWN INDICATION
     Route: 065
  10. TYLENOL [Concomitant]
     Active Substance: ACETAMINOPHEN
     Indication: PYREXIA
     Route: 065
     Dates: start: 20180914, end: 20180914
  11. ROCEPHIN [Concomitant]
     Active Substance: CEFTRIAXONE SODIUM
     Indication: PYREXIA
     Route: 065
     Dates: start: 20180914, end: 20180914
  12. PEPCID [Concomitant]
     Active Substance: FAMOTIDINE
     Indication: GASTROOESOPHAGEAL REFLUX DISEASE
     Dosage: 8 MILLIGRAM
     Route: 041
     Dates: start: 20180914, end: 20180915
  13. REVLIMID [Suspect]
     Active Substance: LENALIDOMIDE
     Indication: BRAIN STEM GLIOMA
     Dosage: 17.5 MILLIGRAM
     Route: 048
     Dates: start: 20180806, end: 20180914
  14. ONDANSETRON [Concomitant]
     Active Substance: ONDANSETRON
     Indication: GASTROINTESTINAL DISORDER
     Dosage: 8 MILLIGRAM
     Route: 065
     Dates: start: 201708, end: 20180914
  15. CUVPOSA [Concomitant]
     Active Substance: GLYCOPYRROLATE
     Indication: PRODUCT USED FOR UNKNOWN INDICATION
     Dosage: 1MG/5
     Route: 065

REACTIONS (1)
  - Brain stem glioma [Fatal]

NARRATIVE: CASE EVENT DATE: 20180915
